FAERS Safety Report 8255564-7 (Version None)
Quarter: 2012Q2

REPORT INFORMATION
  Report Type: 
  Country: None (occurrence: None)
  Receive Date: 20120403
  Receipt Date: 20120326
  Transmission Date: 20120825
  Serious: No
  Sender: FDA-Public Use
  Company Number: US-BAYER-2012-031891

PATIENT
  Sex: Female
  Weight: 91 kg

DRUGS (3)
  1. ALEVE (CAPLET) [Suspect]
     Dosage: 2 U, PRN
     Route: 048
     Dates: start: 20120301, end: 20120301
  2. ALEVE (CAPLET) [Suspect]
     Indication: ANALGESIC THERAPY
     Dosage: 2 U, PRN
     Route: 048
     Dates: start: 20120201, end: 20120201
  3. CALCIUM CARBONATE [Concomitant]

REACTIONS (1)
  - PAIN [None]
